FAERS Safety Report 9559450 (Version 2)
Quarter: 2013Q4

REPORT INFORMATION
  Report Type: Spontaneous
  Country: HR (occurrence: HR)
  Receive Date: 20130927
  Receipt Date: 20131008
  Transmission Date: 20140711
  Serious: Yes (Hospitalization, Other)
  Sender: FDA-Public Use
  Company Number: HR-ACCORD-019582

PATIENT
  Age: 54 Year
  Sex: Male

DRUGS (3)
  1. TACROLIMUS [Suspect]
     Indication: IMMUNOSUPPRESSION
  2. MYCOPHENOLATE SODIUM [Concomitant]
     Indication: IMMUNOSUPPRESSION
     Dosage: 2X720 MG
  3. BASILIXIMAB [Concomitant]
     Indication: IMMUNOSUPPRESSION

REACTIONS (2)
  - Hepatic failure [Recovered/Resolved]
  - Blood creatinine increased [Recovering/Resolving]
